FAERS Safety Report 20686569 (Version 3)
Quarter: 2022Q2

REPORT INFORMATION
  Report Type: Report from Study
  Country: US (occurrence: US)
  Receive Date: 20220407
  Receipt Date: 20220604
  Transmission Date: 20220721
  Serious: No
  Sender: FDA-Public Use
  Company Number: US-SA-SAC20220404000723

PATIENT
  Age: 40 Year
  Sex: Male

DRUGS (3)
  1. DUPIXENT [Suspect]
     Active Substance: DUPILUMAB
     Indication: Dermatitis atopic
     Dosage: 600 MG, 1X
     Route: 058
     Dates: start: 20220222, end: 20220222
  2. DUPIXENT [Suspect]
     Active Substance: DUPILUMAB
     Dosage: 300 MG, QOW
     Route: 058
  3. CORTISONE [Concomitant]
     Active Substance: CORTISONE

REACTIONS (8)
  - Insomnia [Unknown]
  - Skin haemorrhage [Unknown]
  - Impaired quality of life [Unknown]
  - Skin disorder [Unknown]
  - Feeling abnormal [Unknown]
  - Stress [Unknown]
  - Anxiety [Not Recovered/Not Resolved]
  - Pruritus [Recovering/Resolving]
